FAERS Safety Report 16013651 (Version 2)
Quarter: 2019Q1

REPORT INFORMATION
  Report Type: Report from Study
  Country: US (occurrence: US)
  Receive Date: 20190227
  Receipt Date: 20190228
  Transmission Date: 20190418
  Serious: No
  Sender: FDA-Public Use
  Company Number: US-SA-2019SA050965

PATIENT
  Age: 71 Year
  Sex: Female

DRUGS (1)
  1. ALIROCUMAB [Suspect]
     Active Substance: ALIROCUMAB
     Indication: HYPERCHOLESTEROLAEMIA
     Dosage: 75 MG, QOW
     Route: 058
     Dates: start: 20181201, end: 20190220

REACTIONS (2)
  - Epistaxis [Recovering/Resolving]
  - Muscular weakness [Unknown]

NARRATIVE: CASE EVENT DATE: 20190201
